FAERS Safety Report 9439606 (Version 1)
Quarter: 2013Q3

REPORT INFORMATION
  Report Type: Spontaneous
  Country: US (occurrence: US)
  Receive Date: 20130805
  Receipt Date: 20130805
  Transmission Date: 20140515
  Serious: No
  Sender: FDA-Public Use
  Company Number: US-009507513-1307USA016919

PATIENT
  Sex: Female

DRUGS (5)
  1. DULERA [Suspect]
     Indication: ASTHMA
     Dosage: 100/5 MCG 2 PUFFS IN THE AM AND 2 PUFFS IN THE PM
     Route: 055
     Dates: start: 2013
  2. ACIPHEX [Concomitant]
  3. CRESTOR [Concomitant]
  4. JANUMET [Concomitant]
     Dosage: UNK
     Route: 048
  5. GLIPIZIDE [Concomitant]

REACTIONS (3)
  - Pharyngitis streptococcal [Not Recovered/Not Resolved]
  - Drug dose omission [Unknown]
  - Product quality issue [Unknown]
